FAERS Safety Report 5078385-5 (Version None)
Quarter: 2006Q3

REPORT INFORMATION
  Report Type: 
  Country: None (occurrence: None)
  Receive Date: 20060811
  Receipt Date: 20060802
  Transmission Date: 20061208
  Serious: Yes (Other)
  Sender: FDA-Public Use
  Company Number: JP-JPN-A200603023

PATIENT
  Age: 69 Year
  Sex: Male

DRUGS (3)
  1. PAXIL [Suspect]
     Indication: OBSESSIVE-COMPULSIVE DISORDER
     Route: 048
     Dates: start: 20060516
  2. UNKNOWN NAME [Concomitant]
     Indication: SCHIZOPHRENIA
     Route: 048
     Dates: start: 20060404
  3. ARTANE [Concomitant]
     Indication: PARKINSONISM
     Route: 048
     Dates: start: 20060404

REACTIONS (4)
  - ANOREXIA [None]
  - HEPATITIS [None]
  - JAUNDICE [None]
  - LIVER FUNCTION TEST ABNORMAL [None]
